FAERS Safety Report 4797469-X (Version None)
Quarter: 2005Q4

REPORT INFORMATION
  Report Type: 
  Country: None (occurrence: None)
  Receive Date: 20051013
  Receipt Date: 20020610
  Transmission Date: 20060501
  Serious: Yes (Other)
  Sender: FDA-Public Use
  Company Number: US-GILEAD-2002-04590

PATIENT
  Sex: Female
  Weight: 38.363 kg

DRUGS (5)
  1. VIREAD [Suspect]
     Indication: HIV INFECTION
     Route: 048
     Dates: start: 20011210, end: 20020401
  2. VIDEX [Suspect]
     Indication: HIV INFECTION
     Route: 048
     Dates: start: 20010214, end: 20020401
  3. EPIVIR [Concomitant]
     Indication: HIV INFECTION
     Dates: start: 20011210, end: 20020401
  4. KALETRA [Concomitant]
     Indication: HIV INFECTION
     Dates: end: 20020401
  5. RESCRIPTOR [Concomitant]
     Indication: HIV INFECTION
     Dates: start: 20011210, end: 20020401

REACTIONS (6)
  - CHOLELITHIASIS [None]
  - DRUG INTERACTION [None]
  - DRUG TOXICITY [None]
  - HYDRONEPHROSIS [None]
  - PANCREATITIS [None]
  - WEIGHT DECREASED [None]
